FAERS Safety Report 7815141-6 (Version None)
Quarter: 2011Q4

REPORT INFORMATION
  Report Type: 
  Country: None (occurrence: None)
  Receive Date: 20111014
  Receipt Date: 20111014
  Transmission Date: 20120403
  Serious: Yes (Life-Threatening, Hospitalization)
  Sender: FDA-Public Use
  Company Number: None

PATIENT
  Age: 61 Year
  Sex: Male
  Weight: 86.4 kg

DRUGS (1)
  1. SERTRALINE HYDROCHLORIDE [Suspect]
     Indication: DEPRESSION
     Dosage: 50 MG
     Route: 048
     Dates: start: 20111003, end: 20111011

REACTIONS (3)
  - MULTIPLE DRUG OVERDOSE [None]
  - SUICIDAL BEHAVIOUR [None]
  - SUICIDE ATTEMPT [None]
